FAERS Safety Report 10621658 (Version 1)
Quarter: 2014Q4

REPORT INFORMATION
  Report Type: Spontaneous
  Country: US (occurrence: None)
  Receive Date: 20141201
  Receipt Date: 20141201
  Transmission Date: 20150529
  Serious: Yes (Disabling, Other)
  Sender: FDA-Public Use
  Company Number: None

PATIENT
  Age: 54 Year
  Sex: Female
  Weight: 81.65 kg

DRUGS (25)
  1. LEVOTHYROXINE SODIUM. [Concomitant]
     Active Substance: LEVOTHYROXINE SODIUM
  2. MAGNESIUM [Concomitant]
     Active Substance: MAGNESIUM
  3. CLONAZEPAM. [Concomitant]
     Active Substance: CLONAZEPAM
  4. GABAPENTIN. [Concomitant]
     Active Substance: GABAPENTIN
  5. METOPROLOL TARTRATE. [Concomitant]
     Active Substance: METOPROLOL TARTRATE
  6. VITAMIN D [Concomitant]
     Active Substance: CHOLECALCIFEROL
  7. FUROSEMIDE. [Concomitant]
     Active Substance: FUROSEMIDE
  8. LISINOPRIL. [Concomitant]
     Active Substance: LISINOPRIL
  9. CALCIUM [Concomitant]
     Active Substance: CALCIUM
  10. GABAPENTIN. [Suspect]
     Active Substance: GABAPENTIN
     Indication: NERVOUS SYSTEM DISORDER
     Dosage: 1 CAPSULE AT BEDTIME
     Route: 048
  11. ASPIRIN. [Concomitant]
     Active Substance: ASPIRIN
  12. IRON SUPPLEMENT [Concomitant]
     Active Substance: IRON
  13. OXYBUTYNIN [Concomitant]
     Active Substance: OXYBUTYNIN
  14. TRAZODONE [Concomitant]
     Active Substance: TRAZODONE HYDROCHLORIDE
  15. PYRIDOSTIGMINE [Concomitant]
     Active Substance: PYRIDOSTIGMINE
  16. ACTONEL [Concomitant]
     Active Substance: RISEDRONATE SODIUM
  17. BUPROPION [Concomitant]
     Active Substance: BUPROPION
  18. PRILOSEC [Concomitant]
     Active Substance: OMEPRAZOLE MAGNESIUM
  19. GABAPENTIN. [Suspect]
     Active Substance: GABAPENTIN
     Indication: NEUROLOGICAL SYMPTOM
     Dosage: 1 CAPSULE AT BEDTIME
     Route: 048
  20. OXYCODONE [Concomitant]
     Active Substance: OXYCODONE
  21. PLAVIX [Concomitant]
     Active Substance: CLOPIDOGREL BISULFATE
  22. PRAVASTATIN SODIUM. [Concomitant]
     Active Substance: PRAVASTATIN SODIUM
  23. NOVOLOG [Concomitant]
     Active Substance: INSULIN ASPART
  24. MIDODRINE [Concomitant]
     Active Substance: MIDODRINE
  25. POLY IRON [Concomitant]
     Active Substance: DIETARY SUPPLEMENT

REACTIONS (1)
  - Blood glucose increased [None]

NARRATIVE: CASE EVENT DATE: 20141126
